FAERS Safety Report 16841932 (Version 4)
Quarter: 2022Q1

REPORT INFORMATION
  Report Type: Spontaneous
  Country: SK (occurrence: SK)
  Receive Date: 20190923
  Receipt Date: 20220329
  Transmission Date: 20220423
  Serious: Yes (Other)
  Sender: FDA-Public Use
  Company Number: PHHY2018SK105990

PATIENT
  Age: 59 Year
  Sex: Male

DRUGS (11)
  1. METOPROLOL [Interacting]
     Active Substance: METOPROLOL
     Indication: Product used for unknown indication
     Dosage: 100 MG, BID (50 MG, BID)
     Route: 065
  2. METOPROLOL [Interacting]
     Active Substance: METOPROLOL
     Dosage: 2 DOSAGE FORM, QD (1 DF, BID)
     Route: 065
  3. METFORMIN HYDROCHLORIDE [Interacting]
     Active Substance: METFORMIN HYDROCHLORIDE
     Indication: Diabetes mellitus
     Dosage: 1000 MG, BID (TABLET)
     Route: 065
  4. METFORMIN HYDROCHLORIDE [Interacting]
     Active Substance: METFORMIN HYDROCHLORIDE
     Dosage: 2 DF, UNK (TABLET)
     Route: 065
  5. GLIMEPIRIDE [Interacting]
     Active Substance: GLIMEPIRIDE
     Indication: Diabetes mellitus
     Dosage: 6 MG, QD
     Route: 065
  6. GLIMEPIRIDE [Interacting]
     Active Substance: GLIMEPIRIDE
     Dosage: 1 DOSAGE FORM, QD (1 DF, QD)
     Route: 065
  7. ASPIRIN [Interacting]
     Active Substance: ASPIRIN
     Indication: Product used for unknown indication
     Dosage: 100 MG, QD
     Route: 065
  8. ASPIRIN [Interacting]
     Active Substance: ASPIRIN
     Dosage: 1 DOSAGE FORM (1 DF, QD)
     Route: 065
  9. URAPIDIL [Interacting]
     Active Substance: URAPIDIL
     Indication: Product used for unknown indication
     Dosage: 30 MG, BID
     Route: 065
  10. URAPIDIL [Interacting]
     Active Substance: URAPIDIL
     Dosage: 3 MG, BID
     Route: 065
  11. URAPIDIL [Interacting]
     Active Substance: URAPIDIL
     Dosage: 2 DF, UNK
     Route: 065

REACTIONS (2)
  - Erectile dysfunction [Unknown]
  - Drug interaction [Unknown]
